FAERS Safety Report 9625817 (Version 1)
Quarter: 2013Q4

REPORT INFORMATION
  Report Type: Spontaneous
  Country: US (occurrence: US)
  Receive Date: 20131016
  Receipt Date: 20131016
  Transmission Date: 20140711
  Serious: No
  Sender: FDA-Public Use
  Company Number: US-009507513-1310USA005641

PATIENT
  Age: 7 Year
  Sex: 0

DRUGS (1)
  1. ASMANEX TWISTHALER [Suspect]
     Dosage: AER_EA, 1 STANDARD DOSE OF 30, 1 PUFF ONCE A DAY
     Route: 055
     Dates: start: 20131007

REACTIONS (4)
  - Drug dose omission [Unknown]
  - Device malfunction [Unknown]
  - Product closure issue [Unknown]
  - No adverse event [Unknown]
